FAERS Safety Report 5585893-7 (Version None)
Quarter: 2008Q1

REPORT INFORMATION
  Report Type: 
  Country: None (occurrence: None)
  Receive Date: 20080109
  Receipt Date: 20080108
  Transmission Date: 20080703
  Serious: Yes (Death, Life-Threatening, Hospitalization)
  Sender: FDA-Public Use
  Company Number: AT-BOEHRINGER INGELHEIM PHARMACEUTICALS, INC.-2002-BE-00033BE

PATIENT
  Sex: Male

DRUGS (2)
  1. SIFROL - 0,18 MG - TABLETTEN [Suspect]
     Indication: PARKINSONISM
     Route: 048
     Dates: start: 20010906, end: 20011011
  2. MADOPAR [Suspect]
     Indication: PARKINSON'S DISEASE
     Route: 048
     Dates: end: 20011029

REACTIONS (2)
  - AGRANULOCYTOSIS [None]
  - MULTI-ORGAN FAILURE [None]
